FAERS Safety Report 9494748 (Version 1)
Quarter: 2013Q3

REPORT INFORMATION
  Report Type: Spontaneous
  Country: US (occurrence: None)
  Receive Date: 20130830
  Receipt Date: 20130830
  Transmission Date: 20140515
  Serious: Yes (Life-Threatening)
  Sender: FDA-Public Use
  Company Number: None

PATIENT
  Age: 70 Year
  Sex: Male
  Weight: 72.6 kg

DRUGS (1)
  1. OXALIPLATIN [Suspect]
     Indication: HYPOTENSION
     Dosage: 94 MG IV
     Route: 042
     Dates: start: 20130813, end: 20130813

REACTIONS (1)
  - Anaphylactic reaction [None]
